FAERS Safety Report 13996283 (Version 4)
Quarter: 2018Q2

REPORT INFORMATION
  Report Type: Spontaneous
  Country: DE (occurrence: DE)
  Receive Date: 20170921
  Receipt Date: 20180413
  Transmission Date: 20180711
  Serious: Yes (Other)
  Sender: FDA-Public Use
  Company Number: PHHY2017DE136523

PATIENT
  Sex: Female
  Weight: 52 kg

DRUGS (2)
  1. DESFERAL [Suspect]
     Active Substance: DEFEROXAMINE MESYLATE
     Dosage: 2 MG, BIW
     Route: 065
     Dates: start: 201503
  2. DESFERAL [Suspect]
     Active Substance: DEFEROXAMINE MESYLATE
     Indication: HAEMOCHROMATOSIS
     Dosage: 2 MG, QW
     Route: 065
     Dates: start: 1987, end: 201503

REACTIONS (4)
  - Concomitant disease aggravated [Unknown]
  - Sideroblastic anaemia [Unknown]
  - Myelodysplastic syndrome [Unknown]
  - Appendicitis perforated [Unknown]

NARRATIVE: CASE EVENT DATE: 201503
